FAERS Safety Report 9257928 (Version 1)
Quarter: 2013Q2

REPORT INFORMATION
  Report Type: Spontaneous
  Country: US (occurrence: US)
  Receive Date: 20130426
  Receipt Date: 20130426
  Transmission Date: 20140414
  Serious: No
  Sender: FDA-Public Use
  Company Number: US-GLAXOSMITHKLINE-A1003228A

PATIENT
  Age: 7 Month
  Sex: 0

DRUGS (1)
  1. ZOFRAN [Suspect]
     Indication: VOMITING
     Dosage: .5TAB VARIABLE DOSE
     Route: 048
     Dates: start: 20121127

REACTIONS (1)
  - Drug ineffective [Unknown]
